APPROVED DRUG PRODUCT: DIPHENHYDRAMINE HYDROCHLORIDE
Active Ingredient: DIPHENHYDRAMINE HYDROCHLORIDE
Strength: 50MG
Dosage Form/Route: CAPSULE;ORAL
Application: A083061 | Product #002
Applicant: L PERRIGO CO
Approved: Approved Prior to Jan 1, 1982 | RLD: No | RS: No | Type: DISCN